FAERS Safety Report 8895730 (Version 1)
Quarter: 2012Q4

REPORT INFORMATION
  Report Type: 
  Country: US (occurrence: US)
  Receive Date: 20121107
  Receipt Date: 20121107
  Transmission Date: 20130627
  Serious: No
  Sender: FDA-Public Use
  Company Number: US-ASTRAZENECA-2012SE84152

PATIENT
  Sex: Male

DRUGS (2)
  1. CAPRELSA [Suspect]
     Indication: THYROID CANCER
     Route: 048
  2. CAPRELSA [Suspect]
     Indication: THYROID CANCER
     Route: 048

REACTIONS (1)
  - Eye disorder [Unknown]
